FAERS Safety Report 8970397 (Version 1)
Quarter: 2012Q4

REPORT INFORMATION
  Report Type: 
  Country: US (occurrence: US)
  Receive Date: 20121218
  Receipt Date: 20121218
  Transmission Date: 20130627
  Serious: No
  Sender: FDA-Public Use
  Company Number: US-GLAXOSMITHKLINE-A0970494A

PATIENT
  Age: 56 Year
  Sex: Male

DRUGS (2)
  1. NICORETTE [Suspect]
     Indication: EX-TOBACCO USER
  2. NICORETTE [Suspect]

REACTIONS (2)
  - Intentional drug misuse [Not Recovered/Not Resolved]
  - Drug administration error [Unknown]
